FAERS Safety Report 9869488 (Version 3)
Quarter: 2014Q2

REPORT INFORMATION
  Report Type: Spontaneous
  Country: GB (occurrence: None)
  Receive Date: 20140203
  Receipt Date: 20140430
  Transmission Date: 20141212
  Serious: Yes (Other)
  Sender: FDA-Public Use
  Company Number: AUR-APL-2014-00675

PATIENT
  Age: 75 Year
  Sex: Male
  Weight: 72 kg

DRUGS (3)
  1. RAMIPRIL [Suspect]
     Indication: PRODUCT USED FOR UNKNOWN INDICATION
     Dosage: (2.5 MG, 1 IN 1 D)
     Dates: end: 20131226
  2. ASPIRIN (ACETYLSALICYLIC ACID) [Concomitant]
  3. SIMVASTATIN (SIMVASTATIN) [Concomitant]

REACTIONS (5)
  - Loose tooth [None]
  - Oral discomfort [None]
  - Gingival swelling [None]
  - Angioedema [None]
  - Oral pain [None]
